FAERS Safety Report 9816461 (Version 1)
Quarter: 2014Q1

REPORT INFORMATION
  Report Type: Report from Study
  Country: JP (occurrence: JP)
  Receive Date: 20140114
  Receipt Date: 20140114
  Transmission Date: 20141002
  Serious: Yes (Death, Other)
  Sender: FDA-Public Use
  Company Number: JP-TAKEDA-2014TJP000519

PATIENT
  Age: 81 Year
  Sex: Male
  Weight: 32 kg

DRUGS (4)
  1. LANSOPRAZOLE [Suspect]
     Indication: PROPHYLAXIS AGAINST GASTROINTESTINAL ULCER
     Dosage: 15 MG, QD
     Route: 048
     Dates: start: 20121115, end: 20130111
  2. LOXONIN [Concomitant]
     Indication: CANCER PAIN
     Dosage: 60 MG, 1 DAYS
     Route: 048
     Dates: start: 20121025, end: 20130111
  3. ALDACTONE-A [Concomitant]
     Dosage: 50 MG, 1 DAYS
     Route: 048
     Dates: end: 20130111
  4. MUCOSOLVAN [Concomitant]
     Dosage: 45 MG, 1 DAYS
     Route: 048
     Dates: end: 20130111

REACTIONS (2)
  - Oesophageal carcinoma [Fatal]
  - Condition aggravated [Fatal]
